FAERS Safety Report 20742247 (Version 1)
Quarter: 2022Q2

REPORT INFORMATION
  Report Type: Spontaneous
  Country: None (occurrence: US)
  Receive Date: 20220423
  Receipt Date: 20220423
  Transmission Date: 20220720
  Serious: No
  Sender: FDA-Public Use
  Company Number: US-GREER Laboratories, Inc.-2128098

PATIENT
  Age: 52 Year
  Sex: Female
  Weight: 83.636 kg

DRUGS (1)
  1. MOLDS, RUSTS AND SMUTS, CANDIDA ALBICANS [Suspect]
     Active Substance: CANDIDA ALBICANS
     Indication: Seasonal allergy
     Route: 058
     Dates: start: 20220202, end: 20220302

REACTIONS (3)
  - Oral mucosal eruption [Recovered/Resolved]
  - Glossodynia [Recovered/Resolved]
  - Nausea [Recovered/Resolved]

NARRATIVE: CASE EVENT DATE: 20220202
